FAERS Safety Report 9757635 (Version 4)
Quarter: 2014Q2

REPORT INFORMATION
  Report Type: Report from Study
  Country: BR (occurrence: BR)
  Receive Date: 20131216
  Receipt Date: 20140408
  Transmission Date: 20141212
  Serious: Yes (Other)
  Sender: FDA-Public Use
  Company Number: BR-ROCHE-1317610

PATIENT
  Age: 42 Year
  Sex: Female
  Weight: 58 kg

DRUGS (10)
  1. ACTEMRA [Suspect]
     Indication: RHEUMATOID ARTHRITIS
     Dosage: LAST INFUSION ON 19/NOV/013, 26/MAR/2014.
     Route: 065
     Dates: start: 20130808
  2. ALLEGRA [Concomitant]
  3. HYDROCHLOROTHIAZIDE [Concomitant]
     Route: 065
  4. CAPTOPRIL [Concomitant]
     Route: 065
  5. DIACEREIN [Concomitant]
  6. OMEPRAZOLE [Concomitant]
  7. METHOTREXATE [Concomitant]
  8. FOLIC ACID [Concomitant]
  9. ALENDRONATE [Concomitant]
  10. PREDNISONE [Concomitant]

REACTIONS (5)
  - Swelling [Recovered/Resolved]
  - Blood pressure increased [Recovered/Resolved]
  - Dysuria [Recovered/Resolved]
  - Hypersensitivity [Recovered/Resolved]
  - Arthritis infective [Recovered/Resolved]
